FAERS Safety Report 15033703 (Version 3)
Quarter: 2018Q2

REPORT INFORMATION
  Report Type: Spontaneous
  Country: US (occurrence: US)
  Receive Date: 20180619
  Receipt Date: 20180628
  Transmission Date: 20180711
  Serious: No
  Sender: FDA-Public Use
  Company Number: US-009507513-1806USA000573

PATIENT
  Age: 24 Year
  Sex: Female
  Weight: 167.8 kg

DRUGS (1)
  1. NEXPLANON [Suspect]
     Active Substance: ETONOGESTREL
     Dosage: 1 ROD, LEFT UPPER ARM
     Route: 059
     Dates: start: 201307

REACTIONS (4)
  - Complication associated with device [Not Recovered/Not Resolved]
  - Implant site scar [Unknown]
  - No adverse event [Unknown]
  - Drug dose omission [Unknown]

NARRATIVE: CASE EVENT DATE: 201307
